FAERS Safety Report 24783138 (Version 1)
Quarter: 2024Q4

REPORT INFORMATION
  Report Type: Spontaneous
  Country: US (occurrence: None)
  Receive Date: 20241226
  Receipt Date: 20241226
  Transmission Date: 20250115
  Serious: No
  Sender: Public
  Company Number: None

PATIENT
  Age: 67 Year
  Sex: Female

DRUGS (1)
  1. REVLIMID [Suspect]
     Active Substance: LENALIDOMIDE
     Indication: Plasma cell myeloma
     Dosage: FREQUENCY : EVERY OTHER DAY;?
     Route: 048
     Dates: start: 20160819

REACTIONS (10)
  - Abdominal pain upper [None]
  - Enteritis [None]
  - Chest pain [None]
  - Electrocardiogram ST segment depression [None]
  - Vertigo [None]
  - Nausea [None]
  - Diarrhoea [None]
  - Abnormal faeces [None]
  - Blood potassium decreased [None]
  - Urinary tract infection [None]

NARRATIVE: CASE EVENT DATE: 20241215
